FAERS Safety Report 16901982 (Version 1)
Quarter: 2019Q4

REPORT INFORMATION
  Report Type: Spontaneous
  Country: IT (occurrence: IT)
  Receive Date: 20191010
  Receipt Date: 20191010
  Transmission Date: 20200122
  Serious: Yes (Other)
  Sender: FDA-Public Use
  Company Number: IT-TEVA-2019-IT-1118971

PATIENT
  Age: 42 Year
  Sex: Female
  Weight: 90 kg

DRUGS (3)
  1. CARBOPLATINO TEVA 10 MG/ML [Suspect]
     Active Substance: CARBOPLATIN
     Indication: CHEMOTHERAPY
     Route: 041
     Dates: start: 20190923, end: 20190923
  2. AVASTIN [Concomitant]
     Active Substance: BEVACIZUMAB
     Route: 042
  3. PACLITAXEL MYLAN GENERICS 6 MG/ML CONCENTRATO PER SOLUZIONE PER INFUSI [Concomitant]

REACTIONS (1)
  - Anaphylactic shock [Recovered/Resolved]

NARRATIVE: CASE EVENT DATE: 20190923
